FAERS Safety Report 6640747-X (Version None)
Quarter: 2010Q1

REPORT INFORMATION
  Report Type: 
  Country: None (occurrence: None)
  Receive Date: 20100318
  Receipt Date: 20100308
  Transmission Date: 20100710
  Serious: Yes (Other)
  Sender: FDA-Public Use
  Company Number: B0640654A

PATIENT
  Sex: Male

DRUGS (10)
  1. ALLI [Suspect]
     Route: 048
  2. SIMVASTATIN [Concomitant]
     Route: 065
  3. NASONEX [Concomitant]
     Route: 045
  4. CETIRIZINE [Concomitant]
     Route: 065
  5. DIOVAN [Concomitant]
     Route: 065
  6. AMLODIPINE [Concomitant]
     Route: 065
  7. IBUMAX [Concomitant]
     Route: 065
  8. ARTHRYL [Concomitant]
     Route: 065
  9. BISOPROLOL [Concomitant]
     Route: 065
  10. MELOXICAM [Concomitant]
     Route: 065

REACTIONS (1)
  - HEPATIC ENZYME ABNORMAL [None]
